FAERS Safety Report 7046581-3 (Version None)
Quarter: 2010Q4

REPORT INFORMATION
  Report Type: 
  Country: None (occurrence: None)
  Receive Date: 20101015
  Receipt Date: 20101005
  Transmission Date: 20110411
  Serious: No
  Sender: FDA-Public Use
  Company Number: US-BIOGENIDEC-2010BI007487

PATIENT
  Age: 41 Year
  Sex: Male

DRUGS (9)
  1. TYSABRI [Suspect]
     Indication: MULTIPLE SCLEROSIS
     Route: 042
     Dates: start: 20080716, end: 20100204
  2. CARBATROL [Concomitant]
     Indication: EYE PAIN
  3. TRAMADOL HCL [Concomitant]
     Indication: EYE PAIN
     Dates: start: 20100101
  4. HYDROXYZINE [Concomitant]
     Indication: ABDOMINAL DISCOMFORT
  5. NAPROXEN [Concomitant]
     Indication: SWELLING
  6. FUROSEMIDE [Concomitant]
     Indication: FLUID RETENTION
     Dates: start: 20100101
  7. ALBUTEROL INHALER [Concomitant]
     Indication: LUNG DISORDER
  8. MICARDIS [Concomitant]
     Indication: HYPERTENSION
     Dates: start: 20100301
  9. LORAZEPAM [Concomitant]
     Indication: ANXIETY

REACTIONS (13)
  - ANXIETY [None]
  - DIABETES MELLITUS [None]
  - EYE PAIN [None]
  - FLUID RETENTION [None]
  - HYPERSENSITIVITY [None]
  - HYPERTENSION [None]
  - LUNG DISORDER [None]
  - MEMORY IMPAIRMENT [None]
  - NASAL NEOPLASM [None]
  - PAIN [None]
  - STAPHYLOCOCCAL INFECTION [None]
  - SWELLING [None]
  - TENDERNESS [None]
